FAERS Safety Report 20123218 (Version 2)
Quarter: 2021Q4

REPORT INFORMATION
  Report Type: Spontaneous
  Country: US (occurrence: None)
  Receive Date: 20211129
  Receipt Date: 20211214
  Transmission Date: 20220303
  Serious: No
  Sender: FDA-Public Use
  Company Number: US-Laurus-001172

PATIENT
  Sex: Female

DRUGS (3)
  1. EMTRICITABINE AND TENOFOVIR DISOPROXIL FUMARATE [Suspect]
     Active Substance: EMTRICITABINE\TENOFOVIR DISOPROXIL FUMARATE
     Indication: HIV infection
     Dosage: TOTAL DAILY DOSE 1 ORAL TAB/CAPS
     Route: 048
     Dates: start: 20190828
  2. ATAZANAVIR [Suspect]
     Active Substance: ATAZANAVIR
     Indication: HIV infection
     Dosage: TOTAL DAILY DOSE 1 ORAL TAB/CAP
     Route: 048
     Dates: start: 20191028
  3. RITONAVIR [Suspect]
     Active Substance: RITONAVIR
     Indication: HIV infection
     Dosage: TOTAL DAILY DOSE 1 ORAL TAB/CAPS
     Route: 048
     Dates: start: 20191028

REACTIONS (1)
  - Exposure during pregnancy [Unknown]
